FAERS Safety Report 4911900-8 (Version None)
Quarter: 2006Q1

REPORT INFORMATION
  Report Type: 
  Country: None (occurrence: None)
  Receive Date: 20060213
  Receipt Date: 20060213
  Transmission Date: 20060701
  Serious: No
  Sender: FDA-Public Use
  Company Number: None

PATIENT
  Sex: Female

DRUGS (1)
  1. SINEMET [Suspect]
     Indication: PARKINSON'S DISEASE
     Dosage: 25/100  ONE PO QID
     Route: 048
     Dates: start: 20030429

REACTIONS (2)
  - PHARMACEUTICAL PRODUCT COMPLAINT [None]
  - TREMOR [None]
